FAERS Safety Report 6402151-9 (Version None)
Quarter: 2009Q4

REPORT INFORMATION
  Report Type: 
  Country: None (occurrence: None)
  Receive Date: 20091014
  Receipt Date: 20091014
  Transmission Date: 20100525
  Serious: Yes (Life-Threatening, Hospitalization)
  Sender: FDA-Public Use
  Company Number: None

PATIENT
  Age: 55 Year
  Sex: Female
  Weight: 107.5025 kg

DRUGS (1)
  1. MELOXICAM [Suspect]

REACTIONS (11)
  - BLISTER [None]
  - CHEILITIS [None]
  - EYE SWELLING [None]
  - HEADACHE [None]
  - HYPOPHAGIA [None]
  - LIP BLISTER [None]
  - LIP EXFOLIATION [None]
  - LIP SWELLING [None]
  - ORAL PAIN [None]
  - PYREXIA [None]
  - VULVOVAGINAL PRURITUS [None]
